FAERS Safety Report 18733687 (Version 5)
Quarter: 2024Q2

REPORT INFORMATION
  Report Type: Spontaneous
  Country: JP (occurrence: JP)
  Receive Date: 20210113
  Receipt Date: 20240401
  Transmission Date: 20240716
  Serious: Yes (Hospitalization, Other)
  Sender: FDA-Public Use
  Company Number: JP-BRISTOL-MYERS SQUIBB COMPANY-BMS-2021-002538

PATIENT
  Age: 7 Decade
  Sex: Male

DRUGS (1)
  1. OPDIVO [Suspect]
     Active Substance: NIVOLUMAB
     Indication: Gastric cancer
     Route: 041
     Dates: start: 20180501, end: 20190807

REACTIONS (1)
  - Pemphigoid [Recovering/Resolving]

NARRATIVE: CASE EVENT DATE: 20200304
